FAERS Safety Report 11039111 (Version 5)
Quarter: 2016Q3

REPORT INFORMATION
  Report Type: Spontaneous
  Country: US (occurrence: US)
  Receive Date: 20150416
  Receipt Date: 20160714
  Transmission Date: 20161109
  Serious: Yes (Hospitalization, Other)
  Sender: FDA-Public Use
  Company Number: US-009507513-1504USA017075

PATIENT
  Sex: Male

DRUGS (5)
  1. FINASTERIDE. [Suspect]
     Active Substance: FINASTERIDE
     Indication: ALOPECIA
     Dosage: 5 MG, QD
     Route: 048
     Dates: start: 20070228, end: 20091104
  2. FINASTERIDE. [Suspect]
     Active Substance: FINASTERIDE
     Indication: ALOPECIA
     Dosage: 5 MG, QD
     Route: 065
     Dates: start: 20091201, end: 2011
  3. PROZAC [Concomitant]
     Active Substance: FLUOXETINE HYDROCHLORIDE
     Indication: DEPRESSION
     Dosage: UNK
     Route: 065
     Dates: start: 1994
  4. EFFEXOR [Concomitant]
     Active Substance: VENLAFAXINE HYDROCHLORIDE
     Indication: DEPRESSION
     Dosage: UNK
     Route: 065
     Dates: start: 1994
  5. PROSCAR [Suspect]
     Active Substance: FINASTERIDE
     Indication: ALOPECIA
     Dosage: 5 MG, QD
     Route: 048
     Dates: start: 200308, end: 201110

REACTIONS (27)
  - Emotional distress [Not Recovered/Not Resolved]
  - Retrograde ejaculation [Unknown]
  - Spinal column stenosis [Unknown]
  - HIV test positive [Unknown]
  - Depression [Not Recovered/Not Resolved]
  - Sleep apnoea syndrome [Unknown]
  - Asthma [Unknown]
  - Hypogonadism [Not Recovered/Not Resolved]
  - Bladder outlet obstruction [Not Recovered/Not Resolved]
  - Gastrooesophageal reflux disease [Unknown]
  - Anxiety [Not Recovered/Not Resolved]
  - Gynaecomastia [Not Recovered/Not Resolved]
  - Hydrocele [Unknown]
  - Organic erectile dysfunction [Not Recovered/Not Resolved]
  - Pneumonia [Unknown]
  - Psychiatric symptom [Unknown]
  - Arthritis [Unknown]
  - Prostatic obstruction [Unknown]
  - Libido decreased [Not Recovered/Not Resolved]
  - Hypercholesterolaemia [Unknown]
  - Urinary retention [Unknown]
  - Asthenia [Recovered/Resolved]
  - Drug administration error [Recovered/Resolved]
  - Hypertension [Unknown]
  - Cardiac failure [Unknown]
  - Diabetes mellitus [Unknown]
  - Rhinitis allergic [Unknown]

NARRATIVE: CASE EVENT DATE: 200308
